FAERS Safety Report 19195036 (Version 1)
Quarter: 2021Q2

REPORT INFORMATION
  Report Type: Spontaneous
  Country: CN (occurrence: CN)
  Receive Date: 20210429
  Receipt Date: 20210429
  Transmission Date: 20210717
  Serious: Yes (Other)
  Sender: FDA-Public Use
  Company Number: CN-009507513-2104CHN008151

PATIENT
  Age: 45 Year
  Sex: Male
  Weight: 69 kg

DRUGS (6)
  1. CISPLATIN. [Suspect]
     Active Substance: CISPLATIN
     Indication: LUNG NEOPLASM MALIGNANT
     Dosage: DAY 1?2, 68.45MG 1 TIME 1 DAY
     Route: 041
     Dates: start: 20210326, end: 20210327
  2. SODIUM CHLORIDE. [Concomitant]
     Active Substance: SODIUM CHLORIDE
     Dosage: DAY 1?2, 500 ML 1 TIME 1 DAY
     Route: 041
     Dates: start: 20210326, end: 20210327
  3. KEYTRUDA [Suspect]
     Active Substance: PEMBROLIZUMAB
     Indication: LUNG NEOPLASM MALIGNANT
     Dosage: DAY 2, 200 MG 1 TIME 1 DAY
     Route: 041
     Dates: start: 20210327, end: 20210327
  4. PEMETREXED DISODIUM [Suspect]
     Active Substance: PEMETREXED DISODIUM
     Indication: LUNG NEOPLASM MALIGNANT
     Dosage: DAY 1, 0.912 G  1 TIME 1 DAY
     Route: 041
     Dates: start: 20210326, end: 20210326
  5. SODIUM CHLORIDE. [Concomitant]
     Active Substance: SODIUM CHLORIDE
     Dosage: DAY 1, 150 ML 1 TIME 1 DAY
     Route: 041
     Dates: start: 20210326, end: 20210326
  6. SODIUM CHLORIDE. [Concomitant]
     Active Substance: SODIUM CHLORIDE
     Dosage: DAY 2, 100 ML 1 TIME 1 DAY
     Route: 041
     Dates: start: 20210327, end: 20210327

REACTIONS (2)
  - White blood cell count decreased [Recovered/Resolved]
  - Neutrophil count decreased [Recovered/Resolved]

NARRATIVE: CASE EVENT DATE: 20210406
